FAERS Safety Report 5358921-1 (Version None)
Quarter: 2007Q2

REPORT INFORMATION
  Report Type: 
  Country: None (occurrence: None)
  Receive Date: 20070615
  Receipt Date: 20070607
  Transmission Date: 20071010
  Serious: Yes (Hospitalization)
  Sender: FDA-Public Use
  Company Number: B0474288A

PATIENT
  Sex: Male

DRUGS (1)
  1. AVANDAMET [Suspect]
     Route: 065
     Dates: start: 20070109, end: 20070401

REACTIONS (3)
  - ADVERSE DRUG REACTION [None]
  - DYSPNOEA [None]
  - PLEURAL EFFUSION [None]
